FAERS Safety Report 22997518 (Version 2)
Quarter: 2023Q4

REPORT INFORMATION
  Report Type: Report from Study
  Country: CA (occurrence: CA)
  Receive Date: 20230928
  Receipt Date: 20231013
  Transmission Date: 20240110
  Serious: Yes (Life-Threatening)
  Sender: FDA-Public Use
  Company Number: CA-002147023-NVSC2023CA209244

PATIENT
  Age: 80 Year
  Sex: Female
  Weight: 59.4 kg

DRUGS (1)
  1. COSENTYX [Suspect]
     Active Substance: SECUKINUMAB
     Indication: Psoriasis
     Dosage: UNK
     Route: 065

REACTIONS (2)
  - Lung neoplasm [Unknown]
  - Fall [Unknown]

NARRATIVE: CASE EVENT DATE: 20230801
